FAERS Safety Report 14362340 (Version 1)
Quarter: 2018Q1

REPORT INFORMATION
  Report Type: Spontaneous
  Country: FR (occurrence: FR)
  Receive Date: 20180108
  Receipt Date: 20180108
  Transmission Date: 20180509
  Serious: Yes (Hospitalization)
  Sender: FDA-Public Use
  Company Number: FR-CIPLA LTD.-2017FR30673

PATIENT

DRUGS (1)
  1. ZOLEDRONIC ACID [Suspect]
     Active Substance: ZOLEDRONIC ACID
     Indication: OSTEOPOROSIS
     Dosage: 5 MG, UNK
     Route: 042
     Dates: start: 20171122, end: 20171122

REACTIONS (7)
  - Influenza like illness [Recovering/Resolving]
  - Inflammation [Recovering/Resolving]
  - Acute kidney injury [Recovering/Resolving]
  - Erythema [Recovering/Resolving]
  - Diarrhoea [Recovering/Resolving]
  - Pyrexia [Recovering/Resolving]
  - Hepatocellular injury [Unknown]

NARRATIVE: CASE EVENT DATE: 20171123
